FAERS Safety Report 15283963 (Version 1)
Quarter: 2018Q3

REPORT INFORMATION
  Report Type: Spontaneous
  Country: JP (occurrence: JP)
  Receive Date: 20180816
  Receipt Date: 20180816
  Transmission Date: 20181010
  Serious: Yes (Other)
  Sender: FDA-Public Use
  Company Number: PHJP2018JP015117

PATIENT
  Sex: Female
  Weight: 49 kg

DRUGS (1)
  1. NEORAL [Suspect]
     Active Substance: CYCLOSPORINE
     Indication: DERMATITIS ATOPIC
     Dosage: 70?75 MG, UNK
     Route: 048
     Dates: start: 201805

REACTIONS (2)
  - Osteonecrosis [Unknown]
  - Exostosis [Unknown]
